FAERS Safety Report 8917361 (Version 2)
Quarter: 2012Q4

REPORT INFORMATION
  Report Type: 
  Country: NL (occurrence: NL)
  Receive Date: 20121120
  Receipt Date: 20121212
  Transmission Date: 20130627
  Serious: Yes (Hospitalization, Other)
  Sender: FDA-Public Use
  Company Number: NL-PFIZER INC-2012287531

PATIENT
  Age: 73 Year
  Sex: Male
  Weight: 80 kg

DRUGS (8)
  1. ATORVASTATIN CALCIUM [Suspect]
     Indication: CORONARY DISEASE
     Dosage: 10 mg, once daily
     Dates: start: 201209
  2. FENPROCOUMON [Interacting]
     Dosage: 3 mg
     Dates: start: 2008
  3. LATANOPROST [Concomitant]
     Dosage: 1 Gtt, once daily in both eyes
  4. DORZOLAMIDE [Concomitant]
     Dosage: 1 Gtt, twice daily in both eyes
  5. LERCANIDIPINE [Concomitant]
     Dosage: 10 mg, once daily
  6. LABETALOL [Concomitant]
     Dosage: 400 mg, 3 times daily
  7. HYDROCHLOROTHIAZIDE [Concomitant]
     Dosage: 25 mg, once daily
  8. COVERSYL [Concomitant]
     Dosage: 10 mg, once daily

REACTIONS (5)
  - Potentiating drug interaction [Recovered/Resolved]
  - Haematoma [Recovered/Resolved]
  - International normalised ratio increased [Recovered/Resolved]
  - Therapeutic response unexpected with drug substitution [Recovered/Resolved]
  - Product substitution issue [None]
